FAERS Safety Report 18151949 (Version 1)
Quarter: 2020Q3

REPORT INFORMATION
  Report Type: Spontaneous
  Country: US (occurrence: US)
  Receive Date: 20200814
  Receipt Date: 20200814
  Transmission Date: 20201103
  Serious: Yes (Hospitalization, Other)
  Sender: FDA-Public Use
  Company Number: US-PURDUE-USA-2020-0160846

PATIENT
  Age: 50 Year
  Sex: Female

DRUGS (1)
  1. OXYCONTIN [Suspect]
     Active Substance: OXYCODONE HYDROCHLORIDE
     Indication: BACK INJURY
     Dosage: UNK
     Route: 048
     Dates: start: 2011

REACTIONS (6)
  - Drug dependence [Unknown]
  - Unevaluable event [Unknown]
  - Hospitalisation [Unknown]
  - Withdrawal syndrome [Unknown]
  - Surgery [Unknown]
  - Mental status changes [Unknown]

NARRATIVE: CASE EVENT DATE: 2018
